FAERS Safety Report 4630585-1 (Version None)
Quarter: 2005Q2

REPORT INFORMATION
  Report Type: 
  Country: None (occurrence: None)
  Receive Date: 20050408
  Receipt Date: 20050331
  Transmission Date: 20051028
  Serious: Yes (Hospitalization)
  Sender: FDA-Public Use
  Company Number: US-MERCK-0504USA00013

PATIENT
  Age: 69 Year
  Sex: Male

DRUGS (4)
  1. ZOCOR [Suspect]
     Route: 048
     Dates: start: 20041201, end: 20050301
  2. GLYBURIDE [Concomitant]
     Route: 065
  3. SECTRAL [Concomitant]
     Route: 065
  4. LOTREL [Concomitant]
     Route: 048

REACTIONS (2)
  - MYOSITIS [None]
  - SPINAL COMPRESSION FRACTURE [None]
